FAERS Safety Report 22139630 (Version 1)
Quarter: 2023Q1

REPORT INFORMATION
  Report Type: Other
  Country: CA (occurrence: CA)
  Receive Date: 20230327
  Receipt Date: 20230327
  Transmission Date: 20230418
  Serious: Yes (Death, Hospitalization, Other)
  Sender: FDA-Public Use
  Company Number: CA-APOTEX-2023AP005603

PATIENT
  Age: 93 Year
  Sex: Male

DRUGS (2)
  1. LENALIDOMIDE [Suspect]
     Active Substance: LENALIDOMIDE
     Indication: Plasma cell myeloma
     Dosage: 5 MILLIGRAM
     Route: 048
  2. LENALIDOMIDE [Suspect]
     Active Substance: LENALIDOMIDE
     Dosage: 5 MILLIGRAM, 1 EVERY 1.3 DAYS
     Route: 048

REACTIONS (6)
  - Death [Fatal]
  - Extra dose administered [Unknown]
  - Asthenia [Unknown]
  - Constipation [Unknown]
  - Dizziness [Unknown]
  - Pneumonia [Unknown]
